FAERS Safety Report 17305464 (Version 7)
Quarter: 2020Q1

REPORT INFORMATION
  Report Type: Report from Study
  Country: GR (occurrence: GR)
  Receive Date: 20200123
  Receipt Date: 20200325
  Transmission Date: 20200409
  Serious: Yes (Hospitalization)
  Sender: FDA-Public Use
  Company Number: GR-ROCHE-2526820

PATIENT
  Age: 78 Year
  Sex: Male
  Weight: 100 kg

DRUGS (11)
  1. ZINADOL [Concomitant]
     Active Substance: CEFUROXIME AXETIL
     Route: 065
     Dates: start: 20200113
  2. VEMURAFENIB. [Suspect]
     Active Substance: VEMURAFENIB
     Route: 048
     Dates: start: 20190604, end: 20200113
  3. FISIOTENS [Concomitant]
     Active Substance: MOXONIDINE
     Route: 065
  4. VEMURAFENIB. [Suspect]
     Active Substance: VEMURAFENIB
     Indication: MALIGNANT MELANOMA
     Dosage: ON 12/JAN/2020, MOST RECENT DOSE OF VEMURAFENIB WAS GIVEN.
     Route: 048
     Dates: start: 20190315, end: 20190507
  5. ALDACTONE [Concomitant]
     Active Substance: SPIRONOLACTONE
     Route: 065
     Dates: start: 20191010
  6. COBIMETINIB. [Suspect]
     Active Substance: COBIMETINIB
     Indication: MALIGNANT MELANOMA
     Dosage: ON 06/JAN/2020, MOST RECENT DOSE OF COBIMETINIB WAS GIVEN.?ON DAY 1-21 OF A 28-DAY-CYCLE
     Route: 048
     Dates: start: 20190315, end: 20200113
  7. COBIMETINIB. [Suspect]
     Active Substance: COBIMETINIB
     Route: 048
     Dates: start: 20190604, end: 20200113
  8. LASIX [Concomitant]
     Active Substance: FUROSEMIDE
     Route: 065
     Dates: start: 20190408
  9. PENRAZOL [OMEPRAZOLE] [Concomitant]
     Route: 065
     Dates: start: 20190628
  10. COPALIA [Concomitant]
     Active Substance: AMLODIPINE BESYLATE\VALSARTAN
     Route: 065
     Dates: start: 20191010
  11. XOZAL [Concomitant]
     Active Substance: LEVOCETIRIZINE
     Route: 065
     Dates: start: 20190805

REACTIONS (4)
  - Fatigue [Not Recovered/Not Resolved]
  - Asthenia [Not Recovered/Not Resolved]
  - Retinopathy [Recovered/Resolved]
  - Pneumonia [Recovered/Resolved]

NARRATIVE: CASE EVENT DATE: 20190613
